FAERS Safety Report 11896881 (Version 1)
Quarter: 2016Q1

REPORT INFORMATION
  Report Type: Spontaneous
  Country: US (occurrence: US)
  Receive Date: 20160107
  Receipt Date: 20160107
  Transmission Date: 20160526
  Serious: No
  Sender: FDA-Public Use
  Company Number: US-ALLERGAN-1505054US

PATIENT
  Sex: Female

DRUGS (1)
  1. ACZONE [Suspect]
     Active Substance: DAPSONE
     Indication: ECZEMA
     Dosage: UNK UNK, BID
     Route: 061

REACTIONS (5)
  - Dermatitis [Unknown]
  - Product formulation issue [Unknown]
  - Off label use [Unknown]
  - Skin irritation [Unknown]
  - Rash [Unknown]
